FAERS Safety Report 6698157-5 (Version None)
Quarter: 2010Q2

REPORT INFORMATION
  Report Type: 
  Country: None (occurrence: None)
  Receive Date: 20100426
  Receipt Date: 20100426
  Transmission Date: 20101027
  Serious: No
  Sender: FDA-Public Use
  Company Number: None

PATIENT
  Sex: Female
  Weight: 72.5755 kg

DRUGS (1)
  1. FOSAMAX [Suspect]
     Indication: OSTEOPENIA
     Dosage: 70 MG ONCE A WEEK
     Dates: start: 20010505, end: 20100327

REACTIONS (6)
  - ABDOMINAL PAIN UPPER [None]
  - ATRIAL FIBRILLATION [None]
  - DIZZINESS [None]
  - DYSPHAGIA [None]
  - MITRAL VALVE INCOMPETENCE [None]
  - SCAR [None]
